FAERS Safety Report 8794897 (Version 2)
Quarter: 2015Q2

REPORT INFORMATION
  Report Type: Report from Study
  Country: US (occurrence: US)
  Receive Date: 20120917
  Receipt Date: 20150619
  Transmission Date: 20150821
  Serious: Yes (Death)
  Sender: FDA-Public Use
  Company Number: US-ROCHE-1128734

PATIENT
  Sex: Female

DRUGS (6)
  1. ERBITUX [Concomitant]
     Active Substance: CETUXIMAB
     Route: 042
  2. NAVELBINE [Concomitant]
     Active Substance: VINORELBINE TARTRATE
  3. AVASTIN [Suspect]
     Active Substance: BEVACIZUMAB
     Indication: OVARIAN CANCER
     Route: 065
     Dates: start: 20040615
  4. PROTONIX (UNITED STATES) [Concomitant]
  5. ALIMTA [Concomitant]
     Active Substance: PEMETREXED DISODIUM
     Route: 042
  6. VIOXX [Concomitant]
     Active Substance: ROFECOXIB
     Route: 065

REACTIONS (4)
  - Death [Fatal]
  - Weight decreased [Unknown]
  - Dyspnoea [Unknown]
  - Off label use [Unknown]
